FAERS Safety Report 4545033-X (Version None)
Quarter: 2005Q1

REPORT INFORMATION
  Report Type: 
  Country: None (occurrence: None)
  Receive Date: 20050104
  Receipt Date: 20041222
  Transmission Date: 20050727
  Serious: Yes (Other)
  Sender: FDA-Public Use
  Company Number: KII-2004-0014372

PATIENT
  Age: 52 Year
  Sex: Female

DRUGS (3)
  1. MORPHINE SULFATE [Suspect]
     Dosage: ORAL
     Route: 048
  2. ASPIRIN [Suspect]
  3. ACETAMINOPHEN [Suspect]

REACTIONS (9)
  - ALANINE AMINOTRANSFERASE ABNORMAL [None]
  - DRUG ABUSER [None]
  - MIOSIS [None]
  - OXYGEN SATURATION DECREASED [None]
  - PO2 DECREASED [None]
  - RESPIRATORY ACIDOSIS [None]
  - SELF-MEDICATION [None]
  - SINUS TACHYCARDIA [None]
  - SOMNOLENCE [None]
